FAERS Safety Report 8487144-2 (Version None)
Quarter: 2012Q3

REPORT INFORMATION
  Report Type: 
  Country: None (occurrence: None)
  Receive Date: 20120704
  Receipt Date: 20120622
  Transmission Date: 20120928
  Serious: Yes (Other)
  Sender: FDA-Public Use
  Company Number: US-BRISTOL-MYERS SQUIBB COMPANY-16737546

PATIENT
  Age: 61 Year
  Sex: Female

DRUGS (1)
  1. AMPHOTERICIN B FOR INJECTION [Suspect]
     Indication: MENINGITIS COCCIDIOIDES
     Dosage: INCREASED TO 0.5MG
     Route: 037

REACTIONS (1)
  - MYELOPATHY [None]
